FAERS Safety Report 16852416 (Version 1)
Quarter: 2019Q3

REPORT INFORMATION
  Report Type: Spontaneous
  Country: US (occurrence: US)
  Receive Date: 20190925
  Receipt Date: 20190925
  Transmission Date: 20191005
  Serious: No
  Sender: FDA-Public Use
  Company Number: US-ASSERTIO THERAPEUTICS, INC.-US-2018DEP001842

PATIENT

DRUGS (4)
  1. GRALISE [Suspect]
     Active Substance: GABAPENTIN
     Dosage: 1200 MG, QD
     Route: 048
     Dates: start: 2012, end: 2012
  2. GRALISE [Suspect]
     Active Substance: GABAPENTIN
     Dosage: 1800 MG, QD
     Route: 048
     Dates: start: 2012
  3. GRALISE [Suspect]
     Active Substance: GABAPENTIN
     Dosage: 2400 MG, QD
     Route: 048
  4. GRALISE [Suspect]
     Active Substance: GABAPENTIN
     Indication: LUMBAR RADICULOPATHY
     Dosage: 600 MG, QD
     Route: 048
     Dates: start: 2012, end: 2012

REACTIONS (4)
  - Ill-defined disorder [Not Recovered/Not Resolved]
  - Drug titration error [Unknown]
  - Overdose [Unknown]
  - Product use in unapproved indication [Unknown]

NARRATIVE: CASE EVENT DATE: 2012
